FAERS Safety Report 26006088 (Version 1)
Quarter: 2025Q4

REPORT INFORMATION
  Report Type: Spontaneous
  Country: US (occurrence: US)
  Receive Date: 20251106
  Receipt Date: 20251106
  Transmission Date: 20260118
  Serious: No
  Sender: CIPLA
  Company Number: US-CIPLA LTD.-2025US13638

PATIENT

DRUGS (4)
  1. ALBUTEROL [Suspect]
     Active Substance: ALBUTEROL
     Indication: Asthma
     Dosage: 180 MICROGRAMS, PRN (2 PUFFS BY MOUTH EVERY 4-6 HOURS AS NEEDED), REGULAR USER
  2. ALBUTEROL [Suspect]
     Active Substance: ALBUTEROL
     Dosage: 180 MICROGRAMS, PRN (2 PUFFS BY MOUTH EVERY 4-6 HOURS AS NEEDED), OTHER 1 INHALER
     Dates: start: 20250917
  3. ALBUTEROL [Suspect]
     Active Substance: ALBUTEROL
     Dosage: 180 MICROGRAMS, PRN (2 PUFFS BY MOUTH EVERY 4-6 HOURS AS NEEDED), OTHER 3 INHALERS
     Dates: start: 2025
  4. ALBUTEROL [Suspect]
     Active Substance: ALBUTEROL
     Dosage: 180 MICROGRAMS, PRN (2 PUFFS BY MOUTH EVERY 4-6 HOURS AS NEEDED)
     Dates: start: 202510

REACTIONS (4)
  - Dyspnoea [Unknown]
  - Nasal congestion [Unknown]
  - Drug dose omission by device [Unknown]
  - Device delivery system issue [Unknown]

NARRATIVE: CASE EVENT DATE: 20250101
